FAERS Safety Report 7504957-1 (Version None)
Quarter: 2011Q2

REPORT INFORMATION
  Report Type: 
  Country: None (occurrence: None)
  Receive Date: 20110526
  Receipt Date: 20110516
  Transmission Date: 20111010
  Serious: No
  Sender: FDA-Public Use
  Company Number: US-BIOGENIDEC-2010BI011273

PATIENT
  Sex: Female

DRUGS (2)
  1. TYSABRI [Suspect]
     Indication: MULTIPLE SCLEROSIS
     Route: 042
     Dates: start: 20080825
  2. DETROL [Concomitant]

REACTIONS (11)
  - FALL [None]
  - CONFUSIONAL STATE [None]
  - URINARY TRACT INFECTION [None]
  - DYSURIA [None]
  - URINARY INCONTINENCE [None]
  - FAECAL INCONTINENCE [None]
  - GAIT DISTURBANCE [None]
  - GENERAL SYMPTOM [None]
  - MICTURITION URGENCY [None]
  - ALOPECIA [None]
  - CHROMATURIA [None]
